FAERS Safety Report 6703226-7 (Version None)
Quarter: 2010Q2

REPORT INFORMATION
  Report Type: 
  Country: None (occurrence: None)
  Receive Date: 20100430
  Receipt Date: 20100419
  Transmission Date: 20101027
  Serious: Yes (Death)
  Sender: FDA-Public Use
  Company Number: FR-JNJFOC-20100104472

PATIENT
  Sex: Male

DRUGS (18)
  1. STELARA [Suspect]
     Indication: PSORIASIS
     Dosage: 5 DOSES ON 16 MARCH, 14 APRIL, 15 JUN, 27 JULY, 27 OCT 2009
     Route: 058
     Dates: end: 20090101
  2. STELARA [Suspect]
     Dosage: 5 DOSES ON 16 MARCH, 14 APRIL, 15 JUN, 27 JULY, 27 OCT 2009
     Route: 058
     Dates: end: 20090101
  3. STELARA [Suspect]
     Dosage: 5 DOSES ON 16 MARCH, 14 APRIL, 15 JUN, 27 JULY, 27 OCT 2009
     Route: 058
     Dates: end: 20090101
  4. STELARA [Suspect]
     Route: 058
     Dates: end: 20090101
  5. OXYCONTIN [Concomitant]
     Dosage: 2-0-1
  6. CORTANCYL [Concomitant]
  7. SORIATANE [Concomitant]
  8. DIFFU K [Concomitant]
     Dosage: 2-2-2
  9. AMLOR [Concomitant]
  10. OXYCODONE HCL [Concomitant]
  11. TERCIAN [Concomitant]
     Route: 048
  12. AMITRIPTYLINE HCL [Concomitant]
  13. RIVOTRIL [Concomitant]
  14. INIPOMP [Concomitant]
     Indication: GASTRIC ULCER
  15. HUMALOG [Concomitant]
     Dosage: 150 IU- 120 IU - 80 IU
  16. HIBITANE [Concomitant]
     Route: 003
  17. TRIDESONIT [Concomitant]
     Route: 003
  18. BACTROBAN [Concomitant]
     Route: 003

REACTIONS (1)
  - SUDDEN DEATH [None]
